FAERS Safety Report 8451505-8 (Version None)
Quarter: 2012Q2

REPORT INFORMATION
  Report Type: 
  Country: None (occurrence: None)
  Receive Date: 20120620
  Receipt Date: 20120305
  Transmission Date: 20120825
  Serious: No
  Sender: FDA-Public Use
  Company Number: US-VERTEX PHARMACEUTICALS INC.-AE-2012-003180

PATIENT
  Sex: Male
  Weight: 90.8 kg

DRUGS (5)
  1. INCIVEK [Suspect]
     Indication: HEPATITIS C
     Route: 048
     Dates: start: 20120229
  2. RANITIDINE [Concomitant]
     Indication: GASTROOESOPHAGEAL REFLUX DISEASE
     Route: 048
  3. REBETOL [Concomitant]
     Indication: HEPATITIS C
     Route: 048
     Dates: start: 20120229
  4. PEG-INTRON [Concomitant]
     Indication: HEPATITIS C
     Route: 058
     Dates: start: 20120229
  5. NAPROXEN (ALEVE) [Concomitant]
     Indication: HEADACHE
     Route: 048

REACTIONS (5)
  - INJECTION SITE REACTION [None]
  - MIGRAINE [None]
  - DIARRHOEA [None]
  - ANAL HAEMORRHAGE [None]
  - NAUSEA [None]
